FAERS Safety Report 4925752-3 (Version None)
Quarter: 2006Q1

REPORT INFORMATION
  Report Type: 
  Country: None (occurrence: None)
  Receive Date: 20060228
  Receipt Date: 20060220
  Transmission Date: 20060701
  Serious: Yes (Other)
  Sender: FDA-Public Use
  Company Number: PHBS2006DK03016

PATIENT
  Age: 8 Year
  Sex: Male
  Weight: 21 kg

DRUGS (3)
  1. RITALIN [Suspect]
     Indication: ATTENTION DEFICIT/HYPERACTIVITY DISORDER
     Dosage: 10 MG/DAY
     Route: 048
     Dates: start: 20050903
  2. RITALIN [Suspect]
     Dosage: 20 MG/DAY
     Route: 048
     Dates: start: 20050906
  3. RITALIN [Suspect]
     Dosage: 10 MG/DAY
     Route: 048
     Dates: start: 20050915, end: 20050917

REACTIONS (9)
  - ABNORMAL BEHAVIOUR [None]
  - AFFECT LABILITY [None]
  - AGGRESSION [None]
  - ANOREXIA [None]
  - ENURESIS [None]
  - INSOMNIA [None]
  - NIGHTMARE [None]
  - PERSONALITY CHANGE [None]
  - SUICIDAL IDEATION [None]
